FAERS Safety Report 25866653 (Version 1)
Quarter: 2025Q3

REPORT INFORMATION
  Report Type: Spontaneous
  Country: CN (occurrence: CN)
  Receive Date: 20250930
  Receipt Date: 20250930
  Transmission Date: 20251021
  Serious: Yes (Hospitalization, Other)
  Sender: MERCK SHARP & DOHME LLC
  Company Number: CN-009507513-2332578

PATIENT
  Age: 61 Year
  Sex: Male

DRUGS (21)
  1. PEMBROLIZUMAB [Suspect]
     Active Substance: PEMBROLIZUMAB
     Indication: Squamous cell carcinoma of lung
     Dates: start: 20201109, end: 20201109
  2. PEMBROLIZUMAB [Suspect]
     Active Substance: PEMBROLIZUMAB
     Indication: Squamous cell carcinoma of lung
     Dates: start: 20201130, end: 20201130
  3. PEMBROLIZUMAB [Suspect]
     Active Substance: PEMBROLIZUMAB
     Indication: Squamous cell carcinoma of lung
     Dates: start: 20201229, end: 20201229
  4. PEMBROLIZUMAB [Suspect]
     Active Substance: PEMBROLIZUMAB
     Indication: Squamous cell carcinoma of lung
     Dates: start: 20210220, end: 20210220
  5. PEMBROLIZUMAB [Suspect]
     Active Substance: PEMBROLIZUMAB
     Indication: Squamous cell carcinoma of lung
     Route: 041
     Dates: start: 20210609, end: 20210609
  6. PEMBROLIZUMAB [Suspect]
     Active Substance: PEMBROLIZUMAB
     Indication: Squamous cell carcinoma of lung
     Route: 041
     Dates: start: 20210630, end: 20210630
  7. PEMBROLIZUMAB [Suspect]
     Active Substance: PEMBROLIZUMAB
     Indication: Squamous cell carcinoma of lung
     Route: 041
     Dates: start: 20210722, end: 20210722
  8. PEMBROLIZUMAB [Suspect]
     Active Substance: PEMBROLIZUMAB
     Indication: Squamous cell carcinoma of lung
     Route: 041
     Dates: start: 20210812, end: 20210812
  9. PEMBROLIZUMAB [Suspect]
     Active Substance: PEMBROLIZUMAB
     Indication: Squamous cell carcinoma of lung
     Route: 041
     Dates: start: 20210902, end: 20210902
  10. PEMBROLIZUMAB [Suspect]
     Active Substance: PEMBROLIZUMAB
     Indication: Squamous cell carcinoma of lung
     Route: 041
     Dates: start: 20211014, end: 20211014
  11. PEMBROLIZUMAB [Suspect]
     Active Substance: PEMBROLIZUMAB
     Indication: Squamous cell carcinoma of lung
     Route: 041
     Dates: start: 20211104, end: 20211104
  12. PEMBROLIZUMAB [Suspect]
     Active Substance: PEMBROLIZUMAB
     Indication: Squamous cell carcinoma of lung
     Route: 041
     Dates: start: 20211125, end: 20211125
  13. PEMBROLIZUMAB [Suspect]
     Active Substance: PEMBROLIZUMAB
     Indication: Squamous cell carcinoma of lung
     Route: 041
     Dates: start: 20211216, end: 20211216
  14. PEMBROLIZUMAB [Suspect]
     Active Substance: PEMBROLIZUMAB
     Indication: Squamous cell carcinoma of lung
     Route: 041
     Dates: start: 20220106, end: 20220106
  15. PACLITAXEL [Suspect]
     Active Substance: PACLITAXEL
     Indication: Squamous cell carcinoma of lung
     Dates: start: 20201109, end: 20201109
  16. PACLITAXEL [Suspect]
     Active Substance: PACLITAXEL
     Indication: Squamous cell carcinoma of lung
     Dates: start: 20201130, end: 20201130
  17. PACLITAXEL [Suspect]
     Active Substance: PACLITAXEL
     Indication: Squamous cell carcinoma of lung
     Dates: start: 20201229, end: 20201229
  18. PACLITAXEL [Suspect]
     Active Substance: PACLITAXEL
     Indication: Squamous cell carcinoma of lung
     Dates: start: 20210220, end: 20210220
  19. CARBOPLATIN [Suspect]
     Active Substance: CARBOPLATIN
     Indication: Squamous cell carcinoma of lung
     Dates: start: 20201109, end: 20201109
  20. CARBOPLATIN [Suspect]
     Active Substance: CARBOPLATIN
     Indication: Squamous cell carcinoma of lung
     Dates: start: 20201130, end: 20201130
  21. CARBOPLATIN [Suspect]
     Active Substance: CARBOPLATIN
     Indication: Squamous cell carcinoma of lung
     Dates: start: 20201229, end: 20201229

REACTIONS (17)
  - Myelosuppression [Unknown]
  - Pancreatic duct dilatation [Unknown]
  - Diarrhoea [Recovering/Resolving]
  - Anti-insulin antibody positive [Unknown]
  - Immune-mediated lung disease [Unknown]
  - Renal failure [Unknown]
  - Hyperkalaemia [Unknown]
  - Pyrexia [Unknown]
  - Hepatic cancer metastatic [Unknown]
  - Type 1 diabetes mellitus [Unknown]
  - Type 1 diabetes mellitus [Unknown]
  - Diabetic ketoacidosis [Unknown]
  - Renal cyst [Unknown]
  - Inappropriate schedule of product administration [Unknown]
  - Inappropriate schedule of product administration [Unknown]
  - Productive cough [Unknown]
  - Inappropriate schedule of product administration [Unknown]

NARRATIVE: CASE EVENT DATE: 20201229
